FAERS Safety Report 6344257-9 (Version None)
Quarter: 2009Q3

REPORT INFORMATION
  Report Type: 
  Country: None (occurrence: None)
  Receive Date: 20090904
  Receipt Date: 20090904
  Transmission Date: 20100115
  Serious: Yes (Other)
  Sender: FDA-Public Use
  Company Number: None

PATIENT
  Age: 43 Year
  Sex: Female
  Weight: 94.3482 kg

DRUGS (2)
  1. ABILIFY [Suspect]
     Dosage: 60 MG - 80 MG 1 DAILY PO
     Route: 048
     Dates: start: 20080501, end: 20090701
  2. GEODON [Suspect]
     Dosage: 60 MG 1 DAILY PO
     Route: 048

REACTIONS (4)
  - ABASIA [None]
  - ARTHRALGIA [None]
  - MUSCLE RIGIDITY [None]
  - MUSCLE SPASMS [None]
